FAERS Safety Report 23631745 (Version 1)
Quarter: 2024Q1

REPORT INFORMATION
  Report Type: Spontaneous
  Country: US (occurrence: None)
  Receive Date: 20240313
  Receipt Date: 20240313
  Transmission Date: 20240410
  Serious: Yes (Other)
  Sender: FDA-Public Use
  Company Number: None

PATIENT
  Age: 73 Year
  Sex: Female
  Weight: 73.7 kg

DRUGS (1)
  1. IRINOTECAN [Suspect]
     Active Substance: IRINOTECAN
     Indication: Colon cancer
     Dates: start: 20231123

REACTIONS (5)
  - Muscle twitching [None]
  - Muscle twitching [None]
  - Dysarthria [None]
  - Heart rate decreased [None]
  - Infusion related reaction [None]

NARRATIVE: CASE EVENT DATE: 20240312
